FAERS Safety Report 19993875 (Version 1)
Quarter: 2021Q4

REPORT INFORMATION
  Report Type: Spontaneous
  Country: FR (occurrence: FR)
  Receive Date: 20211025
  Receipt Date: 20211025
  Transmission Date: 20220303
  Serious: Yes (Other)
  Sender: FDA-Public Use
  Company Number: None

PATIENT
  Age: 27 Year
  Sex: Female

DRUGS (1)
  1. LOCOID [Suspect]
     Active Substance: HYDROCORTISONE BUTYRATE
     Indication: Eczema
     Route: 003
     Dates: start: 2021

REACTIONS (4)
  - Sensory loss [Recovering/Resolving]
  - Insomnia [Recovering/Resolving]
  - Rebound eczema [Recovering/Resolving]
  - Steroid dependence [Unknown]

NARRATIVE: CASE EVENT DATE: 20210101
